FAERS Safety Report 9521028 (Version 1)
Quarter: 2013Q3

REPORT INFORMATION
  Report Type: Spontaneous
  Country: US (occurrence: US)
  Receive Date: 20130913
  Receipt Date: 20130913
  Transmission Date: 20140515
  Serious: Yes (Hospitalization, Other)
  Sender: FDA-Public Use
  Company Number: US-AMGEN-USASP2013063971

PATIENT
  Age: 42 Year
  Sex: Female

DRUGS (1)
  1. ENBREL [Suspect]
     Indication: RHEUMATOID ARTHRITIS
     Dosage: 50 MG, QWK
     Route: 065
     Dates: start: 1998

REACTIONS (9)
  - Meningioma [Recovered/Resolved]
  - Knee arthroplasty [Recovered/Resolved]
  - Blindness unilateral [Recovered/Resolved]
  - VIIth nerve paralysis [Recovered/Resolved]
  - Femur fracture [Recovered/Resolved]
  - Transfusion [Recovered/Resolved]
  - Pain [Recovered/Resolved]
  - Eye ulcer [Recovered/Resolved]
  - Localised infection [Recovered/Resolved]
